FAERS Safety Report 19927330 (Version 4)
Quarter: 2022Q1

REPORT INFORMATION
  Report Type: Spontaneous
  Country: None (occurrence: CN)
  Receive Date: 20211007
  Receipt Date: 20220321
  Transmission Date: 20220423
  Serious: Yes (Life-Threatening)
  Sender: FDA-Public Use
  Company Number: CN-Y-MABS THERAPEUTICS-2120281

PATIENT
  Age: 30 Month
  Sex: Male
  Weight: 12 kg

DRUGS (26)
  1. DANYELZA [Suspect]
     Active Substance: NAXITAMAB-GQGK
     Indication: Neuroblastoma
     Route: 042
     Dates: start: 20210907, end: 20210916
  2. METHYLPREDNISOLONE [Concomitant]
     Active Substance: METHYLPREDNISOLONE
     Route: 042
     Dates: start: 20210916
  3. DIPHENHYDRAMINE HYDROCHLORIDE [Concomitant]
     Active Substance: DIPHENHYDRAMINE HYDROCHLORIDE
     Route: 042
     Dates: start: 20210916
  4. ONDANSETRON [Concomitant]
     Active Substance: ONDANSETRON
     Route: 042
     Dates: start: 20210916
  5. HYDROMORPHONE HCL [Concomitant]
     Active Substance: HYDROMORPHONE HYDROCHLORIDE
     Route: 042
     Dates: start: 20210916
  6. OMEPRAZOLE [Concomitant]
     Active Substance: OMEPRAZOLE
     Dates: start: 20210916
  7. KETAMINE HYDROCHLORIDE [Concomitant]
     Active Substance: KETAMINE HYDROCHLORIDE
     Route: 042
     Dates: start: 20210916
  8. EPINEPHRINE [Concomitant]
     Active Substance: EPINEPHRINE
     Dates: start: 20210916
  9. CHLORTRIMETON, CHLORPHENAMINE MALEATE [Concomitant]
     Route: 030
     Dates: start: 20210916
  10. BUDESONIDE;SALBUTAMOL [Concomitant]
     Dates: start: 20210916
  11. OXYGEN [Concomitant]
     Active Substance: OXYGEN
     Dates: start: 20210916
  12. LEUKINE [Concomitant]
     Active Substance: SARGRAMOSTIM
     Dates: start: 20210916
  13. IPRATROPIUM BROMIDE [Concomitant]
     Active Substance: IPRATROPIUM BROMIDE
     Dates: start: 20210916
  14. BUDESONIDE [Concomitant]
     Active Substance: BUDESONIDE
     Dates: start: 20210916
  15. DESONIDE [Concomitant]
     Active Substance: DESONIDE
  16. ALBUTEROL [Concomitant]
     Active Substance: ALBUTEROL
  17. IBUPROFEN [Concomitant]
     Active Substance: IBUPROFEN
     Dates: start: 20210916
  18. SODIUM BICARBONATE [Concomitant]
     Active Substance: SODIUM BICARBONATE
     Dates: start: 20210916
  19. MIDAZOLAM [Concomitant]
     Active Substance: MIDAZOLAM
     Dates: start: 20210916
  20. CITRIC BUFFERED NORMAL SALINE [Concomitant]
     Active Substance: ANHYDROUS CITRIC ACID
  21. CHLORPHENIRAMINE [Concomitant]
     Active Substance: CHLORPHENIRAMINE
  22. PENEHYCLIDINE [Concomitant]
  23. NOREPINEPHRINE [Concomitant]
     Active Substance: NOREPINEPHRINE
  24. ALBUMIN (HUMAN) [Concomitant]
     Active Substance: ALBUMIN HUMAN
  25. DEXAMETHASONE [Concomitant]
     Active Substance: DEXAMETHASONE
  26. FUROSEMIDE [Concomitant]
     Active Substance: FUROSEMIDE

REACTIONS (19)
  - Stridor [Recovered/Resolved]
  - Upper airway obstruction [Recovered/Resolved]
  - Heart rate increased [Recovered/Resolved]
  - Hypersensitivity [Recovered/Resolved]
  - Rash [Recovered/Resolved]
  - Hypercapnia [Recovered/Resolved]
  - Metabolic acidosis [Recovered/Resolved with Sequelae]
  - Hypotension [Recovered/Resolved]
  - Bronchospasm [Recovered/Resolved]
  - Rash [Recovered/Resolved]
  - Respiratory distress [Recovered/Resolved]
  - Stridor [Recovered/Resolved]
  - Metabolic acidosis [Recovered/Resolved]
  - Hypotension [Recovered/Resolved]
  - Dyspnoea [Recovered/Resolved]
  - Respiratory distress [Recovered/Resolved]
  - Stridor [Recovered/Resolved]
  - Rales [Recovered/Resolved]
  - Respiration abnormal [Recovered/Resolved]

NARRATIVE: CASE EVENT DATE: 20210907
